FAERS Safety Report 7376313-0 (Version None)
Quarter: 2011Q1

REPORT INFORMATION
  Report Type: 
  Country: None (occurrence: None)
  Receive Date: 20110325
  Receipt Date: 20110314
  Transmission Date: 20110831
  Serious: Yes (Hospitalization)
  Sender: FDA-Public Use
  Company Number: FR-BRISTOL-MYERS SQUIBB COMPANY-15612054

PATIENT
  Age: 64 Year
  Sex: Female

DRUGS (14)
  1. DIFFU-K [Concomitant]
     Route: 048
  2. CARDENSIEL [Concomitant]
  3. LASILIX RETARD [Concomitant]
  4. AXEPIM INJ 2 GM [Suspect]
     Indication: DEVICE RELATED INFECTION
     Route: 042
     Dates: start: 20101231, end: 20110117
  5. KARDEGIC [Concomitant]
     Route: 048
  6. CALCIPARINE [Concomitant]
     Dosage: 1DF=5000 IU/0.2ML
     Route: 058
  7. TRIATEC [Concomitant]
     Route: 048
  8. LANTUS [Concomitant]
     Route: 058
  9. ACETAMINOPHEN [Concomitant]
     Route: 048
  10. TAHOR [Concomitant]
     Route: 048
  11. NOVORAPID [Concomitant]
     Dosage: 1DF=12 IU :16 IU :18 IU
  12. PLAQUENIL [Concomitant]
  13. AMLODIPINE BESYLATE [Concomitant]
  14. TARGOCID [Concomitant]
     Indication: DEVICE RELATED INFECTION
     Dosage: TARGOCID 400 MG 1DF=0.5/D UNIT NOT SPECIFIED
     Route: 042
     Dates: start: 20101215

REACTIONS (3)
  - DYSARTHRIA [None]
  - EPILEPSY [None]
  - METABOLIC ACIDOSIS [None]
